FAERS Safety Report 4963461-5 (Version None)
Quarter: 2006Q1

REPORT INFORMATION
  Report Type: 
  Country: None (occurrence: None)
  Receive Date: 20060330
  Receipt Date: 20060215
  Transmission Date: 20060701
  Serious: Yes (Other)
  Sender: FDA-Public Use
  Company Number: 863#1#2006-00002

PATIENT
  Age: 53 Year
  Sex: Female

DRUGS (1)
  1. IDROLAX (MACROGOL) [Suspect]
     Indication: CONSTIPATION
     Dosage: (10 G 1 IN 1 DAY(S)), ORAL
     Route: 048
     Dates: start: 20051028, end: 20051107

REACTIONS (6)
  - FACE OEDEMA [None]
  - OEDEMA [None]
  - PERITONEAL EFFUSION [None]
  - PLEURAL EFFUSION [None]
  - SKIN OEDEMA [None]
  - WEIGHT INCREASED [None]
